FAERS Safety Report 4862621-1 (Version None)
Quarter: 2005Q4

REPORT INFORMATION
  Report Type: 
  Country: None (occurrence: None)
  Receive Date: 20051221
  Receipt Date: 20051209
  Transmission Date: 20060501
  Serious: Yes (Other)
  Sender: FDA-Public Use
  Company Number: CA-BRISTOL-MYERS SQUIBB COMPANY-13218193

PATIENT
  Age: 83 Year
  Sex: Male

DRUGS (6)
  1. TEQUIN [Suspect]
     Route: 048
  2. DOCUSATE [Concomitant]
  3. FOSINOPRIL SODIUM [Concomitant]
  4. GLYBURIDE [Concomitant]
  5. METFORMIN HCL [Concomitant]
  6. NIFEDIPINE [Concomitant]

REACTIONS (3)
  - BLOOD GLUCOSE DECREASED [None]
  - BLOOD GLUCOSE INCREASED [None]
  - PROTEIN TOTAL [None]
